FAERS Safety Report 8502134-9 (Version None)
Quarter: 2012Q3

REPORT INFORMATION
  Report Type: 
  Country: None (occurrence: None)
  Receive Date: 20120711
  Receipt Date: 20120703
  Transmission Date: 20120928
  Serious: Yes (Other)
  Sender: FDA-Public Use
  Company Number: US-JNJFOC-20120701236

PATIENT
  Sex: Female
  Weight: 83.92 kg

DRUGS (7)
  1. BENADRYL [Suspect]
     Indication: URTICARIA
     Route: 048
     Dates: start: 20120620, end: 20120601
  2. STELARA [Suspect]
     Indication: PSORIASIS
     Route: 058
     Dates: start: 20120301
  3. HYDROCODONE BITARTRATE [Suspect]
     Indication: PROCEDURAL PAIN
     Route: 048
     Dates: start: 20120611, end: 20120601
  4. HYDROXYZINE HCL [Suspect]
     Indication: URTICARIA
     Route: 048
     Dates: start: 20120601
  5. TRAMADOL HCL [Suspect]
     Indication: PROCEDURAL PAIN
     Route: 048
     Dates: start: 20120611
  6. CORTICOSTEROIDS [Suspect]
     Indication: URTICARIA
     Dosage: GIVEN ONCE
     Route: 030
     Dates: start: 20120601, end: 20120601
  7. SKELAXIN [Suspect]
     Indication: MUSCLE RELAXANT THERAPY
     Route: 048
     Dates: start: 20120611, end: 20120601

REACTIONS (4)
  - HYPERSENSITIVITY [None]
  - PROCEDURAL PAIN [None]
  - FALL [None]
  - CONTUSION [None]
